FAERS Safety Report 4840089-9 (Version None)
Quarter: 2005Q4

REPORT INFORMATION
  Report Type: 
  Country: None (occurrence: None)
  Receive Date: 20051125
  Receipt Date: 20051114
  Transmission Date: 20060501
  Serious: Yes (Hospitalization)
  Sender: FDA-Public Use
  Company Number: 2005P1000483

PATIENT
  Age: 64 Year
  Sex: Male
  Weight: 65 kg

DRUGS (14)
  1. RETEPLASE (RETEPLASE) [Suspect]
     Indication: ACUTE MYOCARDIAL INFARCTION
     Dosage: IV
     Route: 042
     Dates: start: 20050923, end: 20050923
  2. ABCIXIMAB (ABCIXIMAB) [Suspect]
     Indication: ACUTE MYOCARDIAL INFARCTION
     Dosage: IV
     Route: 042
     Dates: start: 20050923
  3. FORMOTEROL FUMARATE [Concomitant]
  4. LISINOPRIL [Concomitant]
  5. METHYLPREDNISOLONE [Concomitant]
  6. ASPIRIN [Concomitant]
  7. CLOPIDOGREL BISULFATE [Concomitant]
  8. ATORVASTATIN CALCIUM [Concomitant]
  9. RANITIDINE HYDROCHLORIDE [Concomitant]
  10. LORAZEPAM [Concomitant]
  11. DILTIAZEM HYDROCHLORIDE [Concomitant]
  12. MESNA [Concomitant]
  13. IPRATROPIUM BROMIDE [Concomitant]
  14. BUDESONIDE [Concomitant]

REACTIONS (5)
  - BACK PAIN [None]
  - DISEASE PROGRESSION [None]
  - INTERVERTEBRAL DISC PROTRUSION [None]
  - LUMBAR SPINAL STENOSIS [None]
  - SPINAL OSTEOARTHRITIS [None]
